FAERS Safety Report 11170670 (Version 2)
Quarter: 2015Q3

REPORT INFORMATION
  Report Type: Spontaneous
  Country: US (occurrence: US)
  Receive Date: 20150608
  Receipt Date: 20150729
  Transmission Date: 20151125
  Serious: Yes (Other)
  Sender: FDA-Public Use
  Company Number: US-BAYER-2015-314448

PATIENT
  Age: 37 Year
  Sex: Female

DRUGS (1)
  1. ULTRAVIST [Suspect]
     Active Substance: IOPROMIDE
     Indication: HAEMATURIA
     Dosage: 100 ML, ONCE
     Dates: start: 20150522, end: 20150522

REACTIONS (3)
  - Cough [Unknown]
  - Throat irritation [Unknown]
  - Nasal oedema [Unknown]

NARRATIVE: CASE EVENT DATE: 20150522
